FAERS Safety Report 25725541 (Version 2)
Quarter: 2025Q3

REPORT INFORMATION
  Report Type: Spontaneous
  Country: JP (occurrence: JP)
  Receive Date: 20250826
  Receipt Date: 20250901
  Transmission Date: 20251020
  Serious: Yes (Death, Other)
  Sender: BRISTOL-MYERS SQUIBB COMPANY
  Company Number: JP-ONO-2025JP014885

PATIENT
  Age: 8 Decade
  Sex: Female

DRUGS (1)
  1. OPDIVO [Suspect]
     Active Substance: NIVOLUMAB
     Indication: Oesophageal carcinoma
     Route: 041

REACTIONS (2)
  - Sepsis [Fatal]
  - Immune-mediated hepatic disorder [Unknown]
